FAERS Safety Report 8406204-5 (Version None)
Quarter: 2012Q2

REPORT INFORMATION
  Report Type: 
  Country: None (occurrence: None)
  Receive Date: 20120529
  Receipt Date: 20050613
  Transmission Date: 20120825
  Serious: Yes (Other)
  Sender: FDA-Public Use
  Company Number: JP-2012-12457

PATIENT

DRUGS (2)
  1. MUCOSTA (REBAMIPIDE) [Suspect]
  2. PLETAL [Suspect]

REACTIONS (1)
  - NO ADVERSE EVENT [None]
